FAERS Safety Report 4802541-1 (Version None)
Quarter: 2005Q4

REPORT INFORMATION
  Report Type: 
  Country: None (occurrence: None)
  Receive Date: 20051013
  Receipt Date: 20050927
  Transmission Date: 20060501
  Serious: Yes (Other)
  Sender: FDA-Public Use
  Company Number: 2005S1007392

PATIENT
  Age: 51 Year
  Sex: Female
  Weight: 58.9676 kg

DRUGS (11)
  1. ATIVAN [Suspect]
     Indication: ANXIETY
     Dates: start: 19940101
  2. ATIVAN [Suspect]
     Indication: DEPRESSION
     Dates: start: 19940101
  3. ATIVAN [Suspect]
     Indication: FIBROMYALGIA
     Dates: start: 19940101
  4. ATIVAN [Suspect]
     Indication: MYALGIA
     Dates: start: 19940101
  5. ATIVAN [Suspect]
     Indication: STRESS
     Dates: start: 19940101
  6. LORAZEPAM [Suspect]
     Indication: ANXIETY
  7. LORAZEPAM [Suspect]
     Indication: DEPRESSION
  8. LORAZEPAM [Suspect]
     Indication: FIBROMYALGIA
  9. LORAZEPAM [Suspect]
     Indication: MYALGIA
  10. LORAZEPAM [Suspect]
     Indication: STRESS
  11. ACETAMINOPHEN [Concomitant]

REACTIONS (8)
  - DECREASED APPETITE [None]
  - DEPRESSION [None]
  - DIVERTICULITIS [None]
  - DRUG WITHDRAWAL SYNDROME [None]
  - FEELING ABNORMAL [None]
  - MALAISE [None]
  - MEMORY IMPAIRMENT [None]
  - PAIN [None]
